FAERS Safety Report 19596735 (Version 10)
Quarter: 2022Q4

REPORT INFORMATION
  Report Type: Report from Study
  Country: CA (occurrence: CA)
  Receive Date: 20210722
  Receipt Date: 20221021
  Transmission Date: 20230113
  Serious: Yes (Hospitalization, Other)
  Sender: FDA-Public Use
  Company Number: CA-BIOVITRUM-2021CA6852

PATIENT
  Age: 0 Year
  Sex: Male
  Weight: 6 kg

DRUGS (27)
  1. EMAPALUMAB [Suspect]
     Active Substance: EMAPALUMAB
     Indication: Familial haemophagocytic lymphohistiocytosis
     Dates: start: 20210605, end: 20210605
  2. EMAPALUMAB [Suspect]
     Active Substance: EMAPALUMAB
     Dates: start: 20210608, end: 20210608
  3. EMAPALUMAB [Suspect]
     Active Substance: EMAPALUMAB
     Dates: start: 20210613, end: 20210613
  4. EMAPALUMAB [Suspect]
     Active Substance: EMAPALUMAB
     Dates: start: 20210616, end: 20210616
  5. EMAPALUMAB [Suspect]
     Active Substance: EMAPALUMAB
     Dates: start: 20210618, end: 20210618
  6. EMAPALUMAB [Suspect]
     Active Substance: EMAPALUMAB
     Dates: start: 20210622, end: 20210622
  7. EMAPALUMAB [Suspect]
     Active Substance: EMAPALUMAB
     Dates: start: 20210625, end: 20210625
  8. EMAPALUMAB [Suspect]
     Active Substance: EMAPALUMAB
     Dates: start: 20210629, end: 20210629
  9. EMAPALUMAB [Suspect]
     Active Substance: EMAPALUMAB
     Dates: start: 20210702, end: 20210702
  10. EMAPALUMAB [Suspect]
     Active Substance: EMAPALUMAB
     Dates: start: 20210706, end: 20210706
  11. EMAPALUMAB [Suspect]
     Active Substance: EMAPALUMAB
     Dates: start: 20210709, end: 20210709
  12. EMAPALUMAB [Suspect]
     Active Substance: EMAPALUMAB
     Dates: start: 20210714, end: 20210714
  13. EMAPALUMAB [Suspect]
     Active Substance: EMAPALUMAB
     Dates: start: 20210726, end: 20210726
  14. EMAPALUMAB [Suspect]
     Active Substance: EMAPALUMAB
     Dates: start: 20210805, end: 20210805
  15. EMAPALUMAB [Suspect]
     Active Substance: EMAPALUMAB
     Dates: start: 20210812, end: 20210812
  16. EMAPALUMAB [Suspect]
     Active Substance: EMAPALUMAB
     Dates: start: 20210816, end: 20210816
  17. CEFAZOLIN [Concomitant]
     Active Substance: CEFAZOLIN
     Indication: Antibiotic therapy
     Dates: start: 20210614
  18. ACYCLOVIR [Concomitant]
     Active Substance: ACYCLOVIR
     Indication: Antiviral treatment
     Dates: start: 20210602
  19. CLOTRIMAZOLE [Concomitant]
     Active Substance: CLOTRIMAZOLE
  20. DEXAMETHASONE [Concomitant]
     Active Substance: DEXAMETHASONE
     Indication: Adrenocortical steroid therapy
     Dosage: 1 MG/ML (0.38 MG)?28 DOSES
     Dates: start: 20210528
  21. ENOXAPARIN [Concomitant]
     Active Substance: ENOXAPARIN
     Indication: Anticoagulant therapy
     Dosage: 100 MG/ML
     Dates: start: 20210612
  22. FLUCONAZOLE [Concomitant]
     Active Substance: FLUCONAZOLE
     Indication: Antifungal treatment
     Dosage: 10 MG/ML
     Dates: start: 20210601
  23. LANSOPRAZOLE [Concomitant]
     Active Substance: LANSOPRAZOLE
     Indication: Antacid therapy
     Dosage: DELAYED RELEASE DISINTEGRATING TABLETS?30 DAYS
     Dates: start: 20210603
  24. SEPTRA [Concomitant]
     Active Substance: SULFAMETHOXAZOLE\TRIMETHOPRIM
     Dosage: 100-20 MG ?1.5 TABLET (30 MG TRIMETHOPRIM)?ONCE DAILY ON FRIDAY SATURDAY AND SUNDAY
  25. ZINC OXIDE [Concomitant]
     Active Substance: ZINC OXIDE
     Dosage: 4 PERCENT ?AS NEEDED
  26. METOCLOPRAMIDE [Concomitant]
     Active Substance: METOCLOPRAMIDE
     Indication: Prophylaxis of nausea and vomiting
     Dates: start: 20220616
  27. SULFAMETHOXAZOLE\TRIMETHOPRIM [Concomitant]
     Active Substance: SULFAMETHOXAZOLE\TRIMETHOPRIM
     Indication: Antibiotic therapy
     Dates: start: 20210601

REACTIONS (3)
  - Cytomegalovirus infection [Recovered/Resolved]
  - Respiratory distress [Recovered/Resolved]
  - Pyrexia [Recovered/Resolved]

NARRATIVE: CASE EVENT DATE: 20210707
